FAERS Safety Report 11995448 (Version 1)
Quarter: 2016Q1

REPORT INFORMATION
  Report Type: Spontaneous
  Country: DE (occurrence: DE)
  Receive Date: 20160203
  Receipt Date: 20160203
  Transmission Date: 20160526
  Serious: Yes (Other)
  Sender: FDA-Public Use
  Company Number: DE-ABBVIE-16P-062-1550847-00

PATIENT
  Age: 68 Year
  Sex: Female

DRUGS (3)
  1. ORFIRIL [Suspect]
     Active Substance: VALPROIC ACID
     Indication: ACUTE MYELOID LEUKAEMIA
     Route: 048
  2. VITAMIN E [Concomitant]
     Active Substance: .ALPHA.-TOCOPHEROL
     Indication: PROPHYLAXIS
     Route: 048
  3. TRETINOIN. [Suspect]
     Active Substance: TRETINOIN
     Indication: ACUTE MYELOID LEUKAEMIA
     Route: 048

REACTIONS (1)
  - Deep vein thrombosis [Unknown]
